FAERS Safety Report 5089578-5 (Version None)
Quarter: 2006Q3

REPORT INFORMATION
  Report Type: 
  Country: None (occurrence: None)
  Receive Date: 20060727
  Receipt Date: 20060727
  Transmission Date: 20061208
  Serious: Yes (Other)
  Sender: FDA-Public Use
  Company Number: 2006065769

PATIENT
  Age: 29 Year
  Sex: Female
  Weight: 65.7716 kg

DRUGS (3)
  1. LYRICA [Suspect]
     Indication: CONVULSION
     Dosage: 200 MG (100 MG 1 IN 1 D)
     Route: 065
     Dates: start: 20060101
  2. KEPPRA [Concomitant]
  3. ZONEGRAN [Concomitant]

REACTIONS (2)
  - CONVULSION [None]
  - URINARY RETENTION [None]
